FAERS Safety Report 4834781-X (Version None)
Quarter: 2005Q4

REPORT INFORMATION
  Report Type: 
  Country: None (occurrence: None)
  Receive Date: 20051114
  Receipt Date: 20051031
  Transmission Date: 20060501
  Serious: Yes (Hospitalization, Disabling, Other)
  Sender: FDA-Public Use
  Company Number: 2005149692

PATIENT
  Sex: Male
  Weight: 91.6266 kg

DRUGS (15)
  1. NEURONTIN [Suspect]
     Indication: AFFECTIVE DISORDER
     Dates: start: 19980101
  2. NEURONTIN [Suspect]
     Indication: DEPRESSION
     Dates: start: 19980101
  3. NEURONTIN [Suspect]
     Indication: PAIN
     Dates: start: 19980101
  4. NEURONTIN [Suspect]
     Indication: RADIAL NERVE INJURY
     Dates: start: 19980101
  5. METHADONE HCL [Suspect]
     Indication: BACK INJURY
     Dates: start: 20010101
  6. METHADONE HCL [Suspect]
     Indication: PAIN
     Dates: start: 20010101
  7. ANTIDEPRESSANTS (ANTIDEPRESSANTS) [Concomitant]
  8. OXYCONTIN [Concomitant]
  9. VICODIN ES [Concomitant]
  10. KLONOPIN [Concomitant]
  11. ANALGESICS (ANALGESICS) [Concomitant]
  12. LISINOPRIL [Concomitant]
  13. ATENOLOL [Concomitant]
  14. TRILEPTAL [Concomitant]
  15. DIAZEPAM [Concomitant]

REACTIONS (33)
  - ABASIA [None]
  - AFFECTIVE DISORDER [None]
  - AMNESIA [None]
  - BACK INJURY [None]
  - BODY TEMPERATURE INCREASED [None]
  - BRAIN DAMAGE [None]
  - CEREBROVASCULAR ACCIDENT [None]
  - DEPRESSION [None]
  - EYELID PTOSIS [None]
  - FACIAL PALSY [None]
  - FATIGUE [None]
  - FIBULA FRACTURE [None]
  - GRAND MAL CONVULSION [None]
  - HEPATOCELLULAR DAMAGE [None]
  - HYPERTENSION [None]
  - IMPRISONMENT [None]
  - JAUNDICE [None]
  - LIGAMENT INJURY [None]
  - LOSS OF CONSCIOUSNESS [None]
  - LOSS OF EMPLOYMENT [None]
  - MEMORY IMPAIRMENT [None]
  - MOTOR DYSFUNCTION [None]
  - NUCLEAR MAGNETIC RESONANCE IMAGING ABNORMAL [None]
  - OCULAR ICTERUS [None]
  - PAIN [None]
  - PULMONARY OEDEMA [None]
  - ROAD TRAFFIC ACCIDENT [None]
  - SOMNOLENCE [None]
  - SPEECH DISORDER [None]
  - SUICIDAL IDEATION [None]
  - SUICIDE ATTEMPT [None]
  - SWELLING FACE [None]
  - TIBIA FRACTURE [None]
